FAERS Safety Report 10702577 (Version 3)
Quarter: 2015Q1

REPORT INFORMATION
  Report Type: Report from Study
  Country: DK (occurrence: DK)
  Receive Date: 20150109
  Receipt Date: 20150313
  Transmission Date: 20150721
  Serious: Yes (Death, Life-Threatening, Hospitalization)
  Sender: FDA-Public Use
  Company Number: DK-B.I. PHARMACEUTICALS,INC./RIDGEFIELD-2015-BI-00897DB

PATIENT
  Age: 56 Year
  Sex: Male
  Weight: 80 kg

DRUGS (4)
  1. DOCETAXEL. [Suspect]
     Active Substance: DOCETAXEL
     Indication: NON-SMALL CELL LUNG CANCER
     Dosage: 140 MG
     Route: 042
     Dates: start: 20141205, end: 20141205
  2. PREDNISOLON [Concomitant]
     Active Substance: PREDNISOLONE
     Indication: SUPPORTIVE CARE
     Dosage: 25 MG
     Route: 048
     Dates: start: 20140204
  3. BIBF 1120 [Suspect]
     Active Substance: NINTEDANIB
     Indication: NON-SMALL CELL LUNG CANCER
     Dosage: 400 MG
     Route: 048
     Dates: start: 20141206, end: 20141228
  4. PANTOPRAZOLE [Concomitant]
     Active Substance: PANTOPRAZOLE SODIUM
     Indication: SUPPORTIVE CARE
     Dosage: 40 MG
     Route: 048
     Dates: start: 20141204, end: 20150105

REACTIONS (6)
  - Respiratory failure [Fatal]
  - Pneumonia [Unknown]
  - Supraventricular tachycardia [Recovered/Resolved]
  - Hypotension [Recovered/Resolved]
  - Chest pain [Recovered/Resolved]
  - Sepsis [Unknown]

NARRATIVE: CASE EVENT DATE: 20141214
